FAERS Safety Report 7759010-9 (Version None)
Quarter: 2011Q3

REPORT INFORMATION
  Report Type: 
  Country: None (occurrence: None)
  Receive Date: 20110919
  Receipt Date: 20110906
  Transmission Date: 20111222
  Serious: Yes (Hospitalization)
  Sender: FDA-Public Use
  Company Number: DE-ELI_LILLY_AND_COMPANY-DE201109001223

PATIENT
  Age: 85 Year
  Sex: Female

DRUGS (7)
  1. FORTEO [Suspect]
     Indication: OSTEOPOROSIS
     Dosage: UNK, QD
     Route: 058
     Dates: start: 20110304, end: 20110801
  2. ANALGESICS [Concomitant]
     Dosage: UNK, PRN
  3. CALCIUM + VITAMIN D [Concomitant]
     Dosage: UNK, BID
  4. VITAMIN B [Concomitant]
  5. FORTEO [Suspect]
     Dosage: UNK, QD
     Route: 058
     Dates: start: 20110801
  6. MAGNESIUM [Concomitant]
  7. FISH OIL [Concomitant]

REACTIONS (3)
  - NERVE COMPRESSION [None]
  - PAIN IN EXTREMITY [None]
  - PARAESTHESIA [None]
